FAERS Safety Report 13455985 (Version 1)
Quarter: 2017Q2

REPORT INFORMATION
  Report Type: Spontaneous
  Country: US (occurrence: US)
  Receive Date: 20170418
  Receipt Date: 20170418
  Transmission Date: 20170830
  Serious: Yes (Disabling)
  Sender: FDA-Public Use
  Company Number: None

PATIENT
  Age: 55 Year
  Sex: Male
  Weight: 72 kg

DRUGS (1)
  1. DEPO TESTOSTERONE [Suspect]
     Active Substance: TESTOSTERONE

REACTIONS (7)
  - Withdrawal syndrome [None]
  - Tremor [None]
  - Jealous delusion [None]
  - Paranoia [None]
  - Anger [None]
  - Depression [None]
  - Psychotic disorder [None]

NARRATIVE: CASE EVENT DATE: 20170418
